FAERS Safety Report 7744588-1 (Version None)
Quarter: 2011Q3

REPORT INFORMATION
  Report Type: 
  Country: None (occurrence: None)
  Receive Date: 20110912
  Receipt Date: 20110906
  Transmission Date: 20111222
  Serious: Yes (Hospitalization, Other)
  Sender: FDA-Public Use
  Company Number: US-BAYER-2011-072364

PATIENT
  Age: 53 Year
  Sex: Female

DRUGS (5)
  1. ACETAMINOPHEN [Concomitant]
  2. INSULIN [Concomitant]
  3. FERROUS SULFATE TAB [Concomitant]
  4. BETASERON [Suspect]
     Indication: RELAPSING-REMITTING MULTIPLE SCLEROSIS
     Dosage: 8 MIU, QOD
     Route: 058
     Dates: start: 20110316, end: 20110810
  5. ADVIL LIQUI-GELS [Concomitant]

REACTIONS (10)
  - INFECTION [None]
  - MALAISE [None]
  - PYREXIA [None]
  - BLOOD IRON DECREASED [None]
  - BLOOD COUNT ABNORMAL [None]
  - NERVOUSNESS [None]
  - ANAEMIA [None]
  - PLATELET COUNT DECREASED [None]
  - ASTHENIA [None]
  - HEADACHE [None]
